FAERS Safety Report 8011289-4 (Version None)
Quarter: 2011Q4

REPORT INFORMATION
  Report Type: 
  Country: None (occurrence: None)
  Receive Date: 20111227
  Receipt Date: 20111227
  Transmission Date: 20120403
  Serious: No
  Sender: FDA-Public Use
  Company Number: None

PATIENT
  Age: 60 Year
  Sex: Female
  Weight: 79.378 kg

DRUGS (1)
  1. CIPROFLOXACIN HCL [Suspect]

REACTIONS (6)
  - JOINT STIFFNESS [None]
  - JOINT CREPITATION [None]
  - ARTHROPATHY [None]
  - TENDON DISORDER [None]
  - PAIN [None]
  - WEIGHT BEARING DIFFICULTY [None]
